FAERS Safety Report 9463285 (Version 8)
Quarter: 2016Q1

REPORT INFORMATION
  Report Type: Report from Study
  Country: DE (occurrence: DE)
  Receive Date: 20130819
  Receipt Date: 20160209
  Transmission Date: 20160526
  Serious: Yes (Life-Threatening, Hospitalization)
  Sender: FDA-Public Use
  Company Number: DE-ROCHE-1262393

PATIENT
  Age: 61 Year
  Sex: Female
  Weight: 73 kg

DRUGS (15)
  1. PEG-INTERFERON ALFA 2A [Suspect]
     Active Substance: PEGINTERFERON ALFA-2A
     Indication: CHRONIC HEPATITIS C
     Route: 058
     Dates: start: 20130517
  2. PEG-INTERFERON ALFA 2A [Suspect]
     Active Substance: PEGINTERFERON ALFA-2A
     Dosage: MOST RECENT DOSE ON 04/SEP/2013
     Route: 058
     Dates: start: 20130521, end: 20130905
  3. BOCEPREVIR [Suspect]
     Active Substance: BOCEPREVIR
     Indication: CHRONIC HEPATITIS C
     Route: 048
     Dates: start: 20130612
  4. SPIRONOLACTONE. [Suspect]
     Active Substance: SPIRONOLACTONE
     Indication: HEPATIC CIRRHOSIS
     Route: 048
     Dates: start: 20120501, end: 20130904
  5. RIBAVIRIN. [Suspect]
     Active Substance: RIBAVIRIN
     Dosage: DATE OF MOST RECENT DOSE PRIOR TO SAE: 13/AUG/2013
     Route: 048
  6. BOCEPREVIR [Suspect]
     Active Substance: BOCEPREVIR
     Dosage: DATE OF MOST RECENT DOSE PRIOR TO SAE: 13/AUG/2013
     Route: 048
     Dates: end: 20130905
  7. BOCEPREVIR [Suspect]
     Active Substance: BOCEPREVIR
     Dosage: MOST RECENT DOSE ON 04/SEP/2013
     Route: 048
     Dates: start: 20130612
  8. PYRIDOXIN [Concomitant]
     Active Substance: PYRIDOXINE
     Route: 065
     Dates: start: 20130905
  9. RIBAVIRIN. [Suspect]
     Active Substance: RIBAVIRIN
     Route: 048
  10. THIAMIN [Concomitant]
     Active Substance: THIAMINE
     Route: 065
     Dates: start: 20130905
  11. RIBAVIRIN. [Suspect]
     Active Substance: RIBAVIRIN
     Dosage: MOST RECENT DOSE ON 04/SEP/2013
     Route: 048
     Dates: start: 20130420, end: 20130905
  12. PANTOPRAZOLE [Suspect]
     Active Substance: PANTOPRAZOLE SODIUM
     Indication: GASTRITIS
     Route: 048
     Dates: start: 20120501, end: 20130813
  13. SPIRONOLACTONE. [Suspect]
     Active Substance: SPIRONOLACTONE
     Route: 065
     Dates: start: 20130905
  14. FOLIC ACID. [Concomitant]
     Active Substance: FOLIC ACID
     Route: 065
     Dates: start: 20130905
  15. RIBAVIRIN. [Suspect]
     Active Substance: RIBAVIRIN
     Indication: CHRONIC HEPATITIS C
     Route: 048
     Dates: start: 20130419

REACTIONS (8)
  - Decreased appetite [Recovered/Resolved]
  - Asthenia [Not Recovered/Not Resolved]
  - Myalgia [Recovered/Resolved]
  - Anaemia [Recovered/Resolved]
  - Dehydration [Recovered/Resolved]
  - Fatigue [Recovered/Resolved]
  - Hyponatraemia [Not Recovered/Not Resolved]
  - Rhabdomyolysis [Recovering/Resolving]

NARRATIVE: CASE EVENT DATE: 20130520
